FAERS Safety Report 19996513 (Version 2)
Quarter: 2021Q4

REPORT INFORMATION
  Report Type: Spontaneous
  Country: US (occurrence: US)
  Receive Date: 20211026
  Receipt Date: 20211029
  Transmission Date: 20220303
  Serious: No
  Sender: FDA-Public Use
  Company Number: US-SA-SAC20211021000872

PATIENT
  Age: 61 Year
  Sex: Female

DRUGS (13)
  1. DUPIXENT [Suspect]
     Active Substance: DUPILUMAB
     Indication: Dermatitis atopic
     Dosage: 300 MG, QOW
     Route: 058
     Dates: start: 20210703
  2. DUPIXENT [Suspect]
     Active Substance: DUPILUMAB
     Indication: Asthma
  3. AMLODIPINE [Concomitant]
     Active Substance: AMLODIPINE BESYLATE
  4. BUDESONIDE [Concomitant]
     Active Substance: BUDESONIDE
  5. IPRATROPIUM [Concomitant]
     Active Substance: IPRATROPIUM
  6. LISINOPRIL [Concomitant]
     Active Substance: LISINOPRIL
  7. MONTELUKAST [Concomitant]
     Active Substance: MONTELUKAST SODIUM
     Indication: Asthma
  8. PRAVASTATIN [Concomitant]
     Active Substance: PRAVASTATIN
  9. QVAR [Concomitant]
     Active Substance: BECLOMETHASONE DIPROPIONATE
  10. SEREVENT N [Concomitant]
  11. ALBUTEROL [Concomitant]
     Active Substance: ALBUTEROL
  12. ALBUTEROL\IPRATROPIUM [Concomitant]
     Active Substance: ALBUTEROL\IPRATROPIUM
  13. AZELATINE [Concomitant]

REACTIONS (3)
  - Asthma [Unknown]
  - Injection site reaction [Unknown]
  - Product use issue [Unknown]

NARRATIVE: CASE EVENT DATE: 20210101
